FAERS Safety Report 18222861 (Version 1)
Quarter: 2020Q3

REPORT INFORMATION
  Report Type: Spontaneous
  Country: US (occurrence: US)
  Receive Date: 20200902
  Receipt Date: 20200902
  Transmission Date: 20201103
  Serious: Yes (Hospitalization, Other)
  Sender: FDA-Public Use
  Company Number: US-ASTRAZENECA-2020SF08628

PATIENT
  Age: 76 Year
  Sex: Female
  Weight: 54.4 kg

DRUGS (4)
  1. OMEPRAZOLE. [Suspect]
     Active Substance: OMEPRAZOLE
     Route: 048
  2. VYNDAMAX [Suspect]
     Active Substance: TAFAMIDIS
     Indication: CARDIAC AMYLOIDOSIS
     Route: 048
     Dates: start: 202001
  3. VYNDAMAX [Suspect]
     Active Substance: TAFAMIDIS
     Indication: CARDIAC AMYLOIDOSIS
     Route: 048
     Dates: start: 20200727
  4. VYNDAMAX [Suspect]
     Active Substance: TAFAMIDIS
     Indication: CARDIAC AMYLOIDOSIS
     Route: 048
     Dates: start: 20200718, end: 20200726

REACTIONS (8)
  - Cardiac failure [Unknown]
  - Diarrhoea [Not Recovered/Not Resolved]
  - Helicobacter infection [Unknown]
  - Cardiorenal syndrome [Unknown]
  - Vomiting [Not Recovered/Not Resolved]
  - Hyponatraemia [Not Recovered/Not Resolved]
  - Acute kidney injury [Not Recovered/Not Resolved]
  - Nausea [Not Recovered/Not Resolved]

NARRATIVE: CASE EVENT DATE: 20200718
